FAERS Safety Report 5165061-3 (Version None)
Quarter: 2006Q4

REPORT INFORMATION
  Report Type: 
  Country: None (occurrence: None)
  Receive Date: 20061124
  Receipt Date: 20061110
  Transmission Date: 20070319
  Serious: Yes (Death)
  Sender: FDA-Public Use
  Company Number: 2006106921

PATIENT
  Age: 77 Year
  Sex: Female
  Weight: 66 kg

DRUGS (6)
  1. SUTENT [Suspect]
     Indication: GASTROINTESTINAL STROMAL TUMOUR
     Dosage: 50 MG, ORAL
     Route: 048
     Dates: start: 20060728, end: 20060810
  2. ACEBUTOLOL [Concomitant]
  3. LEVOTHYROXINE SODIUM [Concomitant]
  4. DOMPERIDONE (DOMPERIDONE) [Concomitant]
  5. LEUCOVORIN CALCIUM [Concomitant]
  6. OMEPRAZOLE [Concomitant]

REACTIONS (10)
  - BLOOD ALBUMIN DECREASED [None]
  - BLOOD BILIRUBIN INCREASED [None]
  - BLOOD LACTATE DEHYDROGENASE INCREASED [None]
  - HAEMOGLOBIN DECREASED [None]
  - NEOPLASM PROGRESSION [None]
  - PHLEBITIS [None]
  - PROTEIN TOTAL DECREASED [None]
  - RENAL DISORDER [None]
  - URINARY TRACT INFECTION [None]
  - VENOUS THROMBOSIS [None]
